FAERS Safety Report 7953601-8 (Version None)
Quarter: 2011Q4

REPORT INFORMATION
  Report Type: 
  Country: None (occurrence: None)
  Receive Date: 20111129
  Receipt Date: 20111114
  Transmission Date: 20120403
  Serious: Yes (Hospitalization, Other)
  Sender: FDA-Public Use
  Company Number: AUR-APL-2011-05663

PATIENT
  Age: 23 Year
  Sex: Female

DRUGS (2)
  1. LAMOTRIGINE [Suspect]
     Indication: PRODUCT USED FOR UNKNOWN INDICATION
  2. BACLOFEN [Concomitant]

REACTIONS (31)
  - LOSS OF CONSCIOUSNESS [None]
  - ENCEPHALOPATHY [None]
  - PNEUMONIA ASPIRATION [None]
  - RHABDOMYOLYSIS [None]
  - TOXICITY TO VARIOUS AGENTS [None]
  - VOMITING [None]
  - RESPIRATORY FAILURE [None]
  - ATRIOVENTRICULAR BLOCK COMPLETE [None]
  - VENTRICULAR EXTRASYSTOLES [None]
  - CONVULSION [None]
  - SUICIDE ATTEMPT [None]
  - HYPERCAPNIA [None]
  - GENERAL PHYSICAL HEALTH DETERIORATION [None]
  - VENTRICULAR FIBRILLATION [None]
  - ELECTROCARDIOGRAM QT PROLONGED [None]
  - BALANCE DISORDER [None]
  - ATAXIA [None]
  - SPEECH DISORDER [None]
  - RESPIRATORY DEPRESSION [None]
  - INCORRECT DOSE ADMINISTERED [None]
  - BODY TEMPERATURE DECREASED [None]
  - VENTRICULAR TACHYCARDIA [None]
  - ARRHYTHMIA SUPRAVENTRICULAR [None]
  - MEMORY IMPAIRMENT [None]
  - AREFLEXIA [None]
  - BLOOD PRESSURE DECREASED [None]
  - HYPONATRAEMIA [None]
  - HYPOKALAEMIA [None]
  - PULSE ABSENT [None]
  - PSYCHOMOTOR RETARDATION [None]
  - COMA [None]
